FAERS Safety Report 6420874-2 (Version None)
Quarter: 2009Q4

REPORT INFORMATION
  Report Type: 
  Country: None (occurrence: None)
  Receive Date: 20091027
  Receipt Date: 20091027
  Transmission Date: 20100525
  Serious: Yes (Death)
  Sender: FDA-Public Use
  Company Number: None

PATIENT
  Age: 21 Year
  Sex: Male
  Weight: 47.1741 kg

DRUGS (13)
  1. ISENTRESS [Suspect]
     Indication: HIV INFECTION
     Dosage: 400 MG BID ORAL
     Route: 048
     Dates: start: 20090707, end: 20090909
  2. NORVIR [Suspect]
     Indication: HIV INFECTION
     Dosage: 100 MG QD ORAL
     Route: 048
     Dates: start: 20090707, end: 20090909
  3. PREZISTA [Suspect]
     Indication: HIV INFECTION
     Dosage: 800 MG QD ORAL
     Route: 048
     Dates: start: 20090707, end: 20090909
  4. SEVELAMER HYDROCHLORIDE (RENAGEL) [Concomitant]
  5. LOPERAMIDE [Concomitant]
  6. AMILODIPINE [Concomitant]
  7. ERGOCALCIFEROL [Concomitant]
  8. ESOMEPRAZOLE MAGNESIUM (NEXIUM) [Concomitant]
  9. MAGNESIUM OXIDE [Concomitant]
  10. FOLATE [Concomitant]
  11. SYNTHROID [Concomitant]
  12. ALDACTONE [Concomitant]
  13. MEGACE [Concomitant]

REACTIONS (11)
  - ANAEMIA [None]
  - DECUBITUS ULCER [None]
  - DEHYDRATION [None]
  - DIARRHOEA [None]
  - ELECTROLYTE IMBALANCE [None]
  - FATIGUE [None]
  - HAEMODIALYSIS [None]
  - MALNUTRITION [None]
  - PNEUMONIA [None]
  - RENAL FAILURE ACUTE [None]
  - SEPSIS [None]
